FAERS Safety Report 6611368-X (Version None)
Quarter: 2010Q1

REPORT INFORMATION
  Report Type: 
  Country: None (occurrence: None)
  Receive Date: 20100303
  Receipt Date: 20100226
  Transmission Date: 20100710
  Serious: Yes (Hospitalization, Other)
  Sender: FDA-Public Use
  Company Number: US-BRISTOL-MYERS SQUIBB COMPANY-14877989

PATIENT
  Age: 77 Year
  Sex: Female

DRUGS (22)
  1. ABATACEPT [Suspect]
     Indication: RHEUMATOID ARTHRITIS
     Dosage: INTERRUPTED ON 30NOV09
     Route: 058
     Dates: start: 20090914, end: 20091123
  2. METHOTREXATE [Suspect]
     Indication: RHEUMATOID ARTHRITIS
     Dates: start: 20090914
  3. PREDNISONE [Concomitant]
     Dosage: ONE EACH MORNING
     Dates: start: 20090914
  4. FOSAMAX [Concomitant]
     Dates: start: 20090914
  5. FOLINIC ACID [Concomitant]
     Dosage: 1 TABLET
     Dates: start: 20090914
  6. CHANTIX [Concomitant]
     Dosage: 1 TABLET
     Dates: start: 20090914
  7. SINGULAIR [Concomitant]
     Dosage: 1 TAB
     Dates: start: 20090514
  8. SPIRIVA [Concomitant]
     Dosage: HANDIHALER 18MCG 1 CAP
     Dates: start: 20090210
  9. FORADIL [Concomitant]
     Dosage: AEROLIZER 1 PUFF TWICE DAILY
     Dates: start: 20090210
  10. K-TAB [Concomitant]
     Dosage: 1 TABLET
     Dates: start: 20070904
  11. CALTRATE [Concomitant]
     Dosage: 1 DOSAGE FORM=600 (UNITS NOT SPECIFIED)
     Dates: start: 20060816
  12. PREMARIN [Concomitant]
     Dosage: 1 TABLET
     Dates: start: 20060323
  13. EFFEXOR XR [Concomitant]
     Dosage: 1 TABLET
     Dates: start: 20060323
  14. NORCO [Concomitant]
     Dosage: 1 DOSAGE FORM=10/325(UNITS NOT MENTIONED) EVERY 4 HOURS PRN
     Dates: start: 20090914
  15. DULCOLAX [Concomitant]
     Indication: CONSTIPATION
     Dosage: 1-2 TAB PRN
     Dates: start: 20070129
  16. NOVAHISTINE EXPECTORANT [Concomitant]
     Dates: start: 20091023
  17. LOVENOX [Concomitant]
     Dosage: LOVENOX INJ
     Route: 058
     Dates: start: 20091202
  18. MAG-OX [Concomitant]
     Dosage: MAG-OX 400. FORMULATION TAB
     Dates: start: 20091130
  19. LOPRESSOR [Concomitant]
     Dosage: TAKEN 1/2 TAB
     Dates: start: 20091130
  20. DILAUDID [Concomitant]
     Dosage: PRN
     Dates: start: 20091130
  21. COUMADIN [Concomitant]
     Dosage: 1 DF= 5MG 1 TAB, 1MG 1 TAB
     Dates: start: 20091130
  22. AVELOX [Concomitant]
     Dosage: 1 TAB
     Dates: start: 20091130

REACTIONS (5)
  - DYSPNOEA [None]
  - LUNG NEOPLASM MALIGNANT [None]
  - PNEUMONIA [None]
  - PNEUMOTHORAX [None]
  - PULMONARY EMBOLISM [None]
